FAERS Safety Report 5503408-6 (Version None)
Quarter: 2007Q4

REPORT INFORMATION
  Report Type: 
  Country: None (occurrence: None)
  Receive Date: 20071031
  Receipt Date: 20071019
  Transmission Date: 20080405
  Serious: Yes (Other)
  Sender: FDA-Public Use
  Company Number: US-PFIZER INC-2007088434

PATIENT
  Sex: Female

DRUGS (1)
  1. LYRICA [Suspect]
     Indication: CONVULSION

REACTIONS (1)
  - ROAD TRAFFIC ACCIDENT [None]
